FAERS Safety Report 6220278-1 (Version None)
Quarter: 2009Q2

REPORT INFORMATION
  Report Type: 
  Country: None (occurrence: None)
  Receive Date: 20090527
  Receipt Date: 20090514
  Transmission Date: 20091009
  Serious: Yes (Other)
  Sender: FDA-Public Use
  Company Number: US-144805

PATIENT
  Sex: Female
  Weight: 24 kg

DRUGS (1)
  1. WINRHO SDF [Suspect]
     Indication: IDIOPATHIC THROMBOCYTOPENIC PURPURA
     Dosage: 75 ?G/KG QD INTRAVENOUS
     Route: 042
     Dates: start: 20090424, end: 20090424

REACTIONS (2)
  - HAEMOLYTIC ANAEMIA [None]
  - OVERDOSE [None]
